FAERS Safety Report 6686557-9 (Version None)
Quarter: 2010Q2

REPORT INFORMATION
  Report Type: 
  Country: None (occurrence: None)
  Receive Date: 20100419
  Receipt Date: 20100414
  Transmission Date: 20101027
  Serious: Yes (Other)
  Sender: FDA-Public Use
  Company Number: GB-ROCHE-697163

PATIENT
  Age: 20 Year
  Sex: Female
  Weight: 64.4 kg

DRUGS (2)
  1. ISOTRETINOIN [Suspect]
     Indication: ACNE
     Route: 048
     Dates: start: 20090701, end: 20100101
  2. YASMIN [Concomitant]
     Indication: CONTRACEPTION
     Route: 048

REACTIONS (6)
  - BLEPHARITIS [None]
  - DEPRESSION [None]
  - DERMATITIS [None]
  - DRY EYE [None]
  - DRY MOUTH [None]
  - WITHDRAWAL SYNDROME [None]
